FAERS Safety Report 8609577-3 (Version None)
Quarter: 2012Q3

REPORT INFORMATION
  Report Type: 
  Country: None (occurrence: None)
  Receive Date: 20120821
  Receipt Date: 20120815
  Transmission Date: 20120928
  Serious: No
  Sender: FDA-Public Use
  Company Number: US-PFIZER INC-2012200766

PATIENT
  Sex: Female

DRUGS (1)
  1. ADVIL [Suspect]
     Dosage: 2 PILLS, ONCE
     Route: 048
     Dates: start: 20120815

REACTIONS (3)
  - PRURITUS [None]
  - EYE SWELLING [None]
  - RASH [None]
